FAERS Safety Report 24917988 (Version 1)
Quarter: 2025Q1

REPORT INFORMATION
  Report Type: Spontaneous
  Country: US (occurrence: US)
  Receive Date: 20250203
  Receipt Date: 20250203
  Transmission Date: 20250408
  Serious: Yes (Other)
  Sender: TAKEDA
  Company Number: US-TAKEDA-2025TUS008003

PATIENT

DRUGS (2)
  1. VYVANSE [Suspect]
     Active Substance: LISDEXAMFETAMINE DIMESYLATE
     Indication: Attention deficit hyperactivity disorder
  2. BPC 157 [Concomitant]

REACTIONS (17)
  - Colitis ulcerative [Recovering/Resolving]
  - Hypersomnia [Unknown]
  - Balance disorder [Unknown]
  - Back pain [Unknown]
  - Seasonal allergy [Unknown]
  - Serum serotonin increased [Unknown]
  - Drug intolerance [Unknown]
  - Post-traumatic stress disorder [Unknown]
  - Product availability issue [Unknown]
  - Heart rate increased [Unknown]
  - Abdominal discomfort [Unknown]
  - Fatigue [Unknown]
  - Blood pressure increased [Unknown]
  - Anxiety [Unknown]
  - Headache [Unknown]
  - Dizziness [Unknown]
  - Nausea [Unknown]
